FAERS Safety Report 10574320 (Version 3)
Quarter: 2015Q1

REPORT INFORMATION
  Report Type: Spontaneous
  Country: US (occurrence: US)
  Receive Date: 20141110
  Receipt Date: 20150226
  Transmission Date: 20150720
  Serious: Yes (Hospitalization, Other)
  Sender: FDA-Public Use
  Company Number: US-MALLINCKRODT-T201403923

PATIENT
  Age: 9 Year
  Sex: Female

DRUGS (1)
  1. GABLOFEN [Suspect]
     Active Substance: BACLOFEN
     Indication: MUSCLE SPASTICITY
     Dosage: 188.1 MCG/DAY
     Route: 037

REACTIONS (7)
  - Device kink [Recovered/Resolved]
  - Underdose [Unknown]
  - Mass [Recovered/Resolved]
  - Overdose [Unknown]
  - Dysarthria [Recovered/Resolved]
  - Device dislocation [Recovered/Resolved]
  - Drug withdrawal syndrome [Unknown]

NARRATIVE: CASE EVENT DATE: 201410
